FAERS Safety Report 7629920-1 (Version None)
Quarter: 2011Q3

REPORT INFORMATION
  Report Type: 
  Country: None (occurrence: None)
  Receive Date: 20110722
  Receipt Date: 20110707
  Transmission Date: 20111222
  Serious: Yes (Other)
  Sender: FDA-Public Use
  Company Number: US-BAYER-2011-059972

PATIENT
  Age: 87 Year
  Sex: Male

DRUGS (4)
  1. VITAMIN B12 NOS [Concomitant]
     Dosage: UNK UNK, OM
  2. BLOOD PRESSURE MEDICATION (NOS) [Concomitant]
     Indication: HYPERTENSION
  3. ASPIRIN [Suspect]
     Dosage: UNK
     Route: 048
     Dates: start: 20100101
  4. VITAMIN D [Concomitant]

REACTIONS (4)
  - HAEMORRHAGE [None]
  - DRY SKIN [None]
  - SKIN ATROPHY [None]
  - CONTUSION [None]
